FAERS Safety Report 23462138 (Version 2)
Quarter: 2024Q3

REPORT INFORMATION
  Report Type: Spontaneous
  Country: US (occurrence: US)
  Receive Date: 20240131
  Receipt Date: 20240708
  Transmission Date: 20241017
  Serious: No
  Sender: SANOFI AVENTIS
  Company Number: US-SA-SAC20240124000818

PATIENT
  Sex: Female

DRUGS (1)
  1. DUPIXENT [Suspect]
     Active Substance: DUPILUMAB
     Indication: Dermatitis atopic
     Dosage: 300 MG, QOW
     Route: 058
     Dates: start: 2017

REACTIONS (12)
  - Arthritis [Unknown]
  - Anxiety [Unknown]
  - Depression [Unknown]
  - Visual impairment [Unknown]
  - Asthenopia [Unknown]
  - Gait disturbance [Unknown]
  - Movement disorder [Unknown]
  - Pruritus [Unknown]
  - Arthralgia [Unknown]
  - Dry eye [Unknown]
  - Eye pruritus [Unknown]
  - Rash [Unknown]
